FAERS Safety Report 4338020-8 (Version None)
Quarter: 2004Q2

REPORT INFORMATION
  Report Type: 
  Country: None (occurrence: None)
  Receive Date: 20040407
  Receipt Date: 20040318
  Transmission Date: 20050107
  Serious: Yes (Other)
  Sender: FDA-Public Use
  Company Number: FR_040203584

PATIENT
  Age: 61 Year
  Sex: Female
  Weight: 70 kg

DRUGS (2)
  1. EVISTA [Suspect]
     Indication: OSTEOPOROSIS
     Dosage: 60 MG/DAY
     Dates: start: 20020601, end: 20040201
  2. TOCOPHEROL CONCENTRATE CAP [Concomitant]

REACTIONS (3)
  - AMNESIA [None]
  - ELECTROENCEPHALOGRAM ABNORMAL [None]
  - TRANSIENT ISCHAEMIC ATTACK [None]
